FAERS Safety Report 6545904-9 (Version None)
Quarter: 2010Q1

REPORT INFORMATION
  Report Type: 
  Country: None (occurrence: None)
  Receive Date: 20100121
  Receipt Date: 20100119
  Transmission Date: 20100710
  Serious: Yes (Life-Threatening, Hospitalization, Disabling, Other)
  Sender: FDA-Public Use
  Company Number: GB-GILEAD-2010-0026534

PATIENT
  Age: 44 Year
  Sex: Male

DRUGS (5)
  1. TRUVADA [Suspect]
     Indication: HIV INFECTION
     Route: 048
     Dates: start: 20071127, end: 20071213
  2. EFAVIRENZ [Suspect]
     Dates: start: 20071127
  3. COMBIVIR [Concomitant]
     Indication: HIV INFECTION
     Route: 048
     Dates: end: 20071127
  4. RITONAVIR [Concomitant]
     Indication: HIV INFECTION
     Route: 048
     Dates: end: 20071127
  5. SAQUINAVIR [Concomitant]
     Indication: HIV INFECTION
     Route: 048
     Dates: end: 20071127

REACTIONS (3)
  - AGGRESSION [None]
  - PARANOIA [None]
  - PSYCHOTIC DISORDER [None]
